FAERS Safety Report 12737648 (Version 1)
Quarter: 2016Q3

REPORT INFORMATION
  Report Type: Spontaneous
  Country: US (occurrence: US)
  Receive Date: 20160913
  Receipt Date: 20160913
  Transmission Date: 20161109
  Serious: Yes (Hospitalization)
  Sender: FDA-Public Use
  Company Number: US-BIOTEST-T 396/13

PATIENT
  Sex: Female

DRUGS (2)
  1. BIVIGAM [Suspect]
     Active Substance: HUMAN IMMUNOGLOBULIN G
     Indication: IMMUNODEFICIENCY COMMON VARIABLE
     Route: 041
     Dates: start: 20130827, end: 20130827
  2. BIVIGAM [Suspect]
     Active Substance: HUMAN IMMUNOGLOBULIN G
     Indication: IMMUNODEFICIENCY COMMON VARIABLE
     Route: 041
     Dates: start: 20130805, end: 20130805

REACTIONS (11)
  - Migraine [Recovered/Resolved]
  - Vomiting [Unknown]
  - Migraine [Recovered/Resolved]
  - Influenza like illness [Recovering/Resolving]
  - Photophobia [Recovered/Resolved]
  - Weight decreased [Recovering/Resolving]
  - White matter lesion [Unknown]
  - Meningitis aseptic [Unknown]
  - Nausea [Recovered/Resolved]
  - Photophobia [Recovered/Resolved]
  - Nausea [Recovered/Resolved]

NARRATIVE: CASE EVENT DATE: 201308
